FAERS Safety Report 15153835 (Version 3)
Quarter: 2018Q3

REPORT INFORMATION
  Report Type: Spontaneous
  Country: US (occurrence: US)
  Receive Date: 20180717
  Receipt Date: 20180914
  Transmission Date: 20181010
  Serious: Yes (Other)
  Sender: FDA-Public Use
  Company Number: US-SA-2018SA192056

PATIENT
  Age: 64 Year
  Sex: Female
  Weight: 64.85 kg

DRUGS (1)
  1. DUPIXENT [Suspect]
     Active Substance: DUPILUMAB
     Indication: DERMATITIS ATOPIC
     Dosage: 300 MG, QOW
     Route: 058
     Dates: start: 20180508

REACTIONS (8)
  - Scab [Unknown]
  - Inflammation [Recovered/Resolved]
  - Joint swelling [Recovering/Resolving]
  - Laboratory test abnormal [Unknown]
  - Erythema [Recovered/Resolved]
  - Haemorrhage [Recovered/Resolved]
  - Pruritus [Recovered/Resolved]
  - Feeling hot [Recovered/Resolved]

NARRATIVE: CASE EVENT DATE: 2018
